FAERS Safety Report 10204856 (Version 1)
Quarter: 2014Q2

REPORT INFORMATION
  Report Type: Spontaneous
  Country: IT (occurrence: None)
  Receive Date: 20140527
  Receipt Date: 20140527
  Transmission Date: 20141212
  Serious: Yes (Other)
  Sender: FDA-Public Use
  Company Number: 2346955

PATIENT
  Age: 49 Year
  Sex: Female

DRUGS (5)
  1. PACLITAXEL [Suspect]
     Indication: BREAST NEOPLASM
     Dosage: CYCLICAL??(NOT OTHERWISE SPECIFIED)
     Route: 042
     Dates: start: 20131227, end: 20140415
  2. AVASTIN /00848101/ [Suspect]
     Indication: BREAST NEOPLASM
     Dosage: CYCLICAL?(NOT OTHERWISE SPECIFIED)
     Route: 042
     Dates: start: 20131227, end: 20140415
  3. NOVONORM [Concomitant]
  4. PARIET [Concomitant]
  5. METFORMINA [Concomitant]

REACTIONS (2)
  - Hypertransaminasaemia [None]
  - Gamma-glutamyltransferase increased [None]
